FAERS Safety Report 5588018-7 (Version None)
Quarter: 2008Q1

REPORT INFORMATION
  Report Type: 
  Country: None (occurrence: None)
  Receive Date: 20080111
  Receipt Date: 20080108
  Transmission Date: 20080703
  Serious: Yes (Death, Hospitalization)
  Sender: FDA-Public Use
  Company Number: PHBS2008US00614

PATIENT
  Age: 36 Year
  Sex: Female

DRUGS (4)
  1. CYCLOSPORINE [Suspect]
     Indication: COLITIS ULCERATIVE
     Dosage: 4 MG/KG/D
     Route: 042
  2. CYCLOSPORINE [Suspect]
     Dosage: 8 MG/KG/D
     Route: 048
  3. CORTICOSTEROIDS [Concomitant]
  4. MERCAPTOPURINE [Concomitant]

REACTIONS (12)
  - ACUTE RESPIRATORY DISTRESS SYNDROME [None]
  - BLOOD CREATININE INCREASED [None]
  - CONVULSION [None]
  - EMPYEMA [None]
  - EMPYEMA DRAINAGE [None]
  - HAEMODIALYSIS [None]
  - HYPOTENSION [None]
  - KLEBSIELLA SEPSIS [None]
  - MECHANICAL VENTILATION [None]
  - MULTI-ORGAN FAILURE [None]
  - NEPHROPATHY TOXIC [None]
  - PNEUMONIA [None]
